FAERS Safety Report 7283341-2 (Version None)
Quarter: 2011Q1

REPORT INFORMATION
  Report Type: 
  Country: None (occurrence: None)
  Receive Date: 20110204
  Receipt Date: 20110204
  Transmission Date: 20110831
  Serious: Yes (Other)
  Sender: FDA-Public Use
  Company Number: None

PATIENT
  Age: 79 Year
  Sex: Male
  Weight: 68.9467 kg

DRUGS (1)
  1. AVELOX [Suspect]
     Indication: PNEUMONIA
     Dosage: 400 MG 1 DAILY BY MOUTH
     Route: 048
     Dates: start: 20100622

REACTIONS (9)
  - DIZZINESS [None]
  - VISION BLURRED [None]
  - TREMOR [None]
  - PARAESTHESIA [None]
  - PAIN [None]
  - TENDON PAIN [None]
  - ARTHRALGIA [None]
  - HEART RATE IRREGULAR [None]
  - HYPOAESTHESIA [None]
